FAERS Safety Report 6299756-5 (Version None)
Quarter: 2009Q3

REPORT INFORMATION
  Report Type: 
  Country: None (occurrence: None)
  Receive Date: 20090806
  Receipt Date: 20090730
  Transmission Date: 20100115
  Serious: Yes (Hospitalization)
  Sender: FDA-Public Use
  Company Number: AU-JNJFOC-20081103703

PATIENT
  Age: 60 Year
  Sex: Male
  Weight: 96 kg

DRUGS (4)
  1. INVEGA [Suspect]
     Route: 048
  2. INVEGA [Suspect]
     Indication: SCHIZOPHRENIA
     Route: 048
  3. ATACAND [Concomitant]
     Indication: HYPERTENSION
  4. VALPRO [Concomitant]
     Indication: AFFECTIVE DISORDER

REACTIONS (1)
  - MANIA [None]
